FAERS Safety Report 7064734-5 (Version None)
Quarter: 2010Q4

REPORT INFORMATION
  Report Type: 
  Country: None (occurrence: None)
  Receive Date: 20101027
  Receipt Date: 20080131
  Transmission Date: 20110411
  Serious: Yes (Hospitalization, Congenital Anomaly)
  Sender: FDA-Public Use
  Company Number: FR-ROCHE-545051

PATIENT
  Age: 1 Day
  Sex: Male
  Weight: 2 kg

DRUGS (3)
  1. RIVOTRIL [Suspect]
     Indication: PRODUCT USED FOR UNKNOWN INDICATION
     Route: 064
     Dates: end: 20070221
  2. DEPAKOTE [Suspect]
     Indication: PRODUCT USED FOR UNKNOWN INDICATION
     Route: 064
     Dates: end: 20070815
  3. MEPRONIZINE [Suspect]
     Indication: PRODUCT USED FOR UNKNOWN INDICATION
     Route: 064
     Dates: end: 20070221

REACTIONS (5)
  - AGITATION [None]
  - CLEFT PALATE [None]
  - CONGENITAL FLOPPY INFANT [None]
  - DYSMORPHISM [None]
  - FOETAL GROWTH RESTRICTION [None]
